FAERS Safety Report 16263733 (Version 7)
Quarter: 2022Q3

REPORT INFORMATION
  Report Type: Other
  Country: US (occurrence: None)
  Receive Date: 20190502
  Receipt Date: 20220927
  Transmission Date: 20221027
  Serious: Yes (Life-Threatening, Other)
  Sender: FDA-Public Use
  Company Number: US-ROCHE-2176859

PATIENT
  Sex: Female

DRUGS (4)
  1. CELLCEPT [Suspect]
     Active Substance: MYCOPHENOLATE MOFETIL
     Indication: Renal transplant
     Dosage: 4BID
     Route: 048
  2. CELLCEPT [Suspect]
     Active Substance: MYCOPHENOLATE MOFETIL
     Indication: Type 2 diabetes mellitus
     Dosage: DOSE: 500 MG?4 TABS BID
     Route: 048
  3. CELLCEPT [Suspect]
     Active Substance: MYCOPHENOLATE MOFETIL
     Indication: Renal transplant
     Dosage: 4 CAPSULE BID
     Route: 048
  4. CELLCEPT [Suspect]
     Active Substance: MYCOPHENOLATE MOFETIL
     Indication: Type 2 diabetes mellitus
     Dosage: 2 BID
     Route: 048

REACTIONS (9)
  - Myocardial infarction [Unknown]
  - Malaise [Unknown]
  - Cerebrovascular accident [Unknown]
  - Hypoacusis [Unknown]
  - Malaise [Unknown]
  - Memory impairment [Unknown]
  - Tremor [Unknown]
  - Pruritus [Unknown]
  - Circumstance or information capable of leading to medication error [Unknown]
